FAERS Safety Report 22522139 (Version 6)
Quarter: 2023Q2

REPORT INFORMATION
  Report Type: Report from Study
  Country: US (occurrence: US)
  Receive Date: 20230605
  Receipt Date: 20230623
  Transmission Date: 20230722
  Serious: No
  Sender: FDA-Public Use
  Company Number: US-002147023-NVSC2023US124765

PATIENT
  Sex: Male

DRUGS (10)
  1. TACROLIMUS [Suspect]
     Active Substance: TACROLIMUS
     Indication: Psoriasis
     Dosage: UNK
     Route: 065
  2. ROSUVASTATIN CALCIUM [Suspect]
     Active Substance: ROSUVASTATIN CALCIUM
     Indication: Psoriasis
     Dosage: UNK
     Route: 065
  3. LOSARTAN POTASSIUM [Suspect]
     Active Substance: LOSARTAN POTASSIUM
     Indication: Psoriasis
     Dosage: UNK
     Route: 065
  4. METFORMIN HYDROCHLORIDE [Suspect]
     Active Substance: METFORMIN HYDROCHLORIDE
     Indication: Psoriasis
     Dosage: UNK
     Route: 065
  5. DORZOLAMIDE [Suspect]
     Active Substance: DORZOLAMIDE
     Indication: Psoriasis
     Dosage: UNK
     Route: 065
  6. TIMOLOL MALEATE [Suspect]
     Active Substance: TIMOLOL MALEATE
     Indication: Psoriasis
     Dosage: UNK
     Route: 065
  7. LATANOPROST [Suspect]
     Active Substance: LATANOPROST
     Indication: Psoriasis
     Dosage: UNK
     Route: 065
  8. MUPIROCIN [Suspect]
     Active Substance: MUPIROCIN
     Indication: Psoriasis
     Dosage: UNK
     Route: 065
  9. METOPROLOL SUCCINATE [Suspect]
     Active Substance: METOPROLOL SUCCINATE
     Indication: Psoriasis
     Dosage: UNK
     Route: 065
  10. ASPIRIN [Suspect]
     Active Substance: ASPIRIN
     Indication: Psoriasis
     Dosage: UNK
     Route: 065

REACTIONS (18)
  - Radiation skin injury [Unknown]
  - Skin lesion [Unknown]
  - Melanocytic naevus [Unknown]
  - Solar lentigo [Unknown]
  - Skin hyperpigmentation [Unknown]
  - Seborrhoeic keratosis [Unknown]
  - Dermal cyst [Unknown]
  - Haemangioma of skin [Unknown]
  - Actinic keratosis [Unknown]
  - Immune system disorder [Unknown]
  - Psoriasis [Unknown]
  - Dermatillomania [Unknown]
  - Macule [Unknown]
  - Papule [Unknown]
  - Photodermatosis [Unknown]
  - Burning sensation [Unknown]
  - Product use in unapproved indication [Unknown]
  - Drug effect less than expected [Unknown]
